FAERS Safety Report 4596784-2 (Version None)
Quarter: 2005Q1

REPORT INFORMATION
  Report Type: 
  Country: None (occurrence: None)
  Receive Date: 20050228
  Receipt Date: 20031205
  Transmission Date: 20050727
  Serious: No
  Sender: FDA-Public Use
  Company Number: 6825

PATIENT
  Sex: Female

DRUGS (2)
  1. METHOTREXATE [Suspect]
     Indication: CROHN'S DISEASE
     Dosage: 25 MG WEEKLY/15 MG WEEKLY IV
     Route: 042
  2. METHOTREXATE [Suspect]
     Indication: CROHN'S DISEASE
     Dosage: 25 MG WEEKLY/15 MG WEEKLY IV
     Route: 042

REACTIONS (2)
  - HAEMATURIA [None]
  - RENAL PAIN [None]
